FAERS Safety Report 11145562 (Version 1)
Quarter: 2015Q2

REPORT INFORMATION
  Report Type: Spontaneous
  Country: CM (occurrence: CM)
  Receive Date: 20150526
  Receipt Date: 20150526
  Transmission Date: 20150821
  Serious: Yes (Life-Threatening, Hospitalization, Other)
  Sender: FDA-Public Use
  Company Number: CM-MALLINCKRODT-T201502740

PATIENT
  Sex: Male

DRUGS (1)
  1. OFIRMEV [Suspect]
     Active Substance: ACETAMINOPHEN
     Indication: PYREXIA
     Dosage: 225 MG, Q6H
     Route: 065
     Dates: start: 20150508

REACTIONS (5)
  - Eye movement disorder [Recovered/Resolved]
  - Body temperature increased [Recovered/Resolved]
  - Seizure [Recovered/Resolved]
  - Chills [Recovered/Resolved]
  - Respiratory arrest [Recovered/Resolved]

NARRATIVE: CASE EVENT DATE: 20150508
